FAERS Safety Report 7518056-6 (Version None)
Quarter: 2011Q2

REPORT INFORMATION
  Report Type: 
  Country: None (occurrence: None)
  Receive Date: 20110523
  Receipt Date: 20110514
  Transmission Date: 20111010
  Serious: Yes (Hospitalization)
  Sender: FDA-Public Use
  Company Number: 2009AC000206

PATIENT
  Age: 48 Year
  Sex: Male
  Weight: 104.3273 kg

DRUGS (57)
  1. HUMALOG [Concomitant]
  2. TRILIPIX [Concomitant]
  3. MEDROL [Concomitant]
  4. ATIVAN [Concomitant]
  5. CYMBALTA [Concomitant]
  6. PROGRAF [Concomitant]
  7. ENALAPRIL MALEATE [Concomitant]
  8. ACETAMINOPHEN [Concomitant]
  9. FISH OIL [Concomitant]
  10. BUMEX [Concomitant]
  11. LANTUS [Concomitant]
  12. HEPARIN [Concomitant]
  13. WARFARIN SODIUM [Concomitant]
  14. PROPOXYPHENE HYDROCHLORIDE [Concomitant]
  15. METOPROLOL SUCCINATE [Concomitant]
  16. ROPINIROLE [Concomitant]
  17. DIGOXIN [Suspect]
     Dosage: 0.125 MG, TIW, PO
     Route: 048
     Dates: start: 20061213, end: 20081001
  18. INSULIN [Concomitant]
  19. CELLCEPT [Concomitant]
  20. SYNTHROID [Concomitant]
  21. NOVOLOG [Concomitant]
  22. PRIMACOR [Concomitant]
  23. DRISDOL [Concomitant]
  24. DIGOXIN [Suspect]
     Dosage: 0.125 MG, QD, PO
     Route: 048
     Dates: start: 20061213, end: 20081001
  25. BACTRIM [Concomitant]
  26. NISAPAN [Concomitant]
  27. LISINOPRIL [Concomitant]
  28. PLAVIX [Concomitant]
  29. FUROSEMIDE [Concomitant]
  30. COREG [Concomitant]
  31. CORDARONE [Concomitant]
  32. XANAX [Concomitant]
  33. LUNESTA [Concomitant]
  34. SIMVASTATIN [Concomitant]
  35. REMERON [Concomitant]
  36. QUININE SULFATE [Concomitant]
  37. DIGOXIN [Suspect]
     Dosage: 0.125 MG, QD, PO
     Route: 048
     Dates: start: 19910701, end: 20060701
  38. LOVENOX [Concomitant]
  39. AMLODIPINE [Concomitant]
  40. DILTIAZEM [Concomitant]
  41. HYDRALAZINE HCL [Concomitant]
  42. AMBIEN [Concomitant]
  43. DIGOXIN [Suspect]
     Dosage: 0.250 MG, QD, PO
     Route: 048
     Dates: start: 19910328, end: 19910701
  44. METOCLOPRAMIDE [Concomitant]
  45. ISORDIL [Concomitant]
  46. MILRINONE [Concomitant]
  47. ACTOS [Concomitant]
  48. VITAMIN D [Concomitant]
  49. THEOPHYLLINE [Concomitant]
  50. ASPIRIN [Concomitant]
  51. PREDNISONE [Concomitant]
  52. LEVOTHYROXINE SODIUM [Concomitant]
  53. ZESTRIL [Concomitant]
  54. VICODIN [Concomitant]
  55. POTASSIUM CHLORIDE [Concomitant]
  56. AMIODARONE HCL [Concomitant]
  57. NEURONTIN [Concomitant]

REACTIONS (43)
  - PAIN [None]
  - ANHEDONIA [None]
  - LYMPHADENOPATHY MEDIASTINAL [None]
  - CORONARY ARTERY THROMBOSIS [None]
  - CERVICAL SPINAL STENOSIS [None]
  - HYPOAESTHESIA [None]
  - TENDONITIS [None]
  - OBESITY [None]
  - CORONARY ARTERY STENOSIS [None]
  - VENTRICULAR TACHYCARDIA [None]
  - INCISION SITE HAEMATOMA [None]
  - CARDIAC DISORDER [None]
  - ANXIETY [None]
  - DIABETES MELLITUS [None]
  - MITRAL VALVE INCOMPETENCE [None]
  - SOMNOLENCE [None]
  - GALLBLADDER POLYP [None]
  - CONSTIPATION [None]
  - INSOMNIA [None]
  - MULTIPLE INJURIES [None]
  - ECONOMIC PROBLEM [None]
  - ISCHAEMIC CARDIOMYOPATHY [None]
  - PARAESTHESIA [None]
  - HYPOTHYROIDISM [None]
  - AMNESIA [None]
  - ACTIVITIES OF DAILY LIVING IMPAIRED [None]
  - DYSLIPIDAEMIA [None]
  - HYPERTENSION [None]
  - CARDIAC FAILURE CONGESTIVE [None]
  - MUSCLE SPASMS [None]
  - ACUTE MYOCARDIAL INFARCTION [None]
  - HIATUS HERNIA [None]
  - BUNDLE BRANCH BLOCK LEFT [None]
  - PULMONARY EMBOLISM [None]
  - METABOLIC ALKALOSIS [None]
  - HEPATIC STEATOSIS [None]
  - NEUROPATHY PERIPHERAL [None]
  - DRUG LEVEL BELOW THERAPEUTIC [None]
  - SLEEP APNOEA SYNDROME [None]
  - HEART TRANSPLANT [None]
  - RENAL FAILURE ACUTE [None]
  - DIABETES MELLITUS INADEQUATE CONTROL [None]
  - SNORING [None]
